FAERS Safety Report 4511900-6 (Version None)
Quarter: 2004Q4

REPORT INFORMATION
  Report Type: 
  Country: None (occurrence: None)
  Receive Date: 20041129
  Receipt Date: 20041122
  Transmission Date: 20050328
  Serious: Yes (Life-Threatening, Hospitalization, Disabling)
  Sender: FDA-Public Use
  Company Number: DE-MERCK-0411DEU00451

PATIENT
  Age: 72 Year
  Sex: Female
  Weight: 75 kg

DRUGS (6)
  1. VIOXX [Suspect]
     Indication: SPINAL DISORDER
     Route: 048
     Dates: start: 20000101
  2. VERAPAMIL [Concomitant]
     Indication: HYPERTENSION
     Route: 048
  3. PROPAFENONE HYDROCHLORIDE [Concomitant]
     Indication: HEART RATE IRREGULAR
     Route: 048
  4. PANTOPRAZOLE SODIUM [Concomitant]
     Indication: ULCER
     Route: 048
  5. ACETYLDIGOXIN [Concomitant]
     Route: 048
  6. CLOPIDOGREL BISULFATE [Concomitant]
     Route: 048
     Dates: start: 20030801

REACTIONS (1)
  - CEREBROVASCULAR ACCIDENT [None]
